FAERS Safety Report 18326030 (Version 1)
Quarter: 2020Q3

REPORT INFORMATION
  Report Type: Spontaneous
  Country: US (occurrence: US)
  Receive Date: 20200929
  Receipt Date: 20200929
  Transmission Date: 20201103
  Serious: Yes (Other)
  Sender: FDA-Public Use
  Company Number: US-MYLANLABS-2020M1082205

PATIENT
  Age: 59 Year
  Sex: Female

DRUGS (7)
  1. CYTARABINE. [Suspect]
     Active Substance: CYTARABINE
     Indication: T-CELL PROLYMPHOCYTIC LEUKAEMIA
     Dosage: 100 MILLIGRAM, 1 DOSE (SINGLE THERAPY)
     Route: 037
     Dates: start: 20170811
  2. METHOTREXATE. [Suspect]
     Active Substance: METHOTREXATE
     Indication: T-CELL PROLYMPHOCYTIC LEUKAEMIA
     Dosage: 15 MILLIGRAM, BIWEEKLY; 4 DOSES (COMBINED THERAPY WITH..
     Route: 037
     Dates: start: 20170822
  3. HYDROCORTISONE. [Suspect]
     Active Substance: HYDROCORTISONE
     Indication: T-CELL PROLYMPHOCYTIC LEUKAEMIA
     Dosage: 50 MILLIGRAM, BIWEEKLY;2 DOSES OF COMBINED..
     Route: 065
     Dates: start: 20170816
  4. CYTARABINE. [Suspect]
     Active Substance: CYTARABINE
     Indication: METASTASES TO MENINGES
     Dosage: 100 MILLIGRAM, BIWEEKLY;2 DOSES (COMBINED THERAPY..
     Route: 037
     Dates: start: 20170816
  5. CYTARABINE. [Suspect]
     Active Substance: CYTARABINE
     Dosage: 40 MILLIGRAM, BIWEEKLY; 4 DOSES (COMBINED THERAPY..
     Route: 037
     Dates: start: 20170822
  6. HYDROCORTISONE. [Suspect]
     Active Substance: HYDROCORTISONE
     Indication: METASTASES TO MENINGES
     Dosage: 50 MILLIGRAM, BIWEEKLY; 4 DOSES OF COMBINED..
     Route: 065
     Dates: start: 20170822
  7. METHOTREXATE. [Suspect]
     Active Substance: METHOTREXATE
     Indication: METASTASES TO MENINGES

REACTIONS (1)
  - Treatment failure [Unknown]

NARRATIVE: CASE EVENT DATE: 2017
